FAERS Safety Report 6720071-7 (Version None)
Quarter: 2010Q2

REPORT INFORMATION
  Report Type: 
  Country: None (occurrence: None)
  Receive Date: 20100507
  Receipt Date: 20100423
  Transmission Date: 20101027
  Serious: Yes (Other)
  Sender: FDA-Public Use
  Company Number: 1-22425150

PATIENT
  Age: 82 Year
  Sex: Male

DRUGS (9)
  1. FENTANYL-75 [Suspect]
     Indication: PAIN
     Dosage: TRANSDERMAL
     Route: 062
     Dates: start: 20091128, end: 20100419
  2. DIAZEPAM [Concomitant]
  3. ENALAPRIL MALEATE [Concomitant]
  4. TAMSULOSIN HCL [Concomitant]
  5. TEMAZEPAM [Concomitant]
  6. LANSOPRAZOLE [Concomitant]
  7. DOMPERIDONE [Concomitant]
  8. BETNOVATE (BETAMETHASONE VALERATE) [Concomitant]
  9. HYOSCINE HBR HYT [Concomitant]

REACTIONS (6)
  - ACCIDENTAL OVERDOSE [None]
  - DEVICE DIFFICULT TO USE [None]
  - DEVICE LEAKAGE [None]
  - MEDICAL DEVICE PAIN [None]
  - OEDEMA PERIPHERAL [None]
  - UNEVALUABLE EVENT [None]
